FAERS Safety Report 6199033-7 (Version None)
Quarter: 2009Q2

REPORT INFORMATION
  Report Type: 
  Country: None (occurrence: None)
  Receive Date: 20090522
  Receipt Date: 20090513
  Transmission Date: 20091009
  Serious: Yes (Hospitalization)
  Sender: FDA-Public Use
  Company Number: CA-JNJFOC-20080706272

PATIENT
  Age: 80 Year
  Sex: Female

DRUGS (1)
  1. REMICADE [Suspect]
     Indication: RHEUMATOID ARTHRITIS
     Dosage: 33 TOTAL DOSES
     Route: 042

REACTIONS (4)
  - ATRIAL FIBRILLATION [None]
  - CYSTITIS [None]
  - PNEUMONIA PRIMARY ATYPICAL [None]
  - PULSE PRESSURE DECREASED [None]
